FAERS Safety Report 17694009 (Version 2)
Quarter: 2020Q2

REPORT INFORMATION
  Report Type: Spontaneous
  Country: US (occurrence: US)
  Receive Date: 20200422
  Receipt Date: 20200618
  Transmission Date: 20200714
  Serious: No
  Sender: FDA-Public Use
  Company Number: US-ASTRAZENECA-2020SE45347

PATIENT
  Age: 24556 Day
  Sex: Female

DRUGS (1)
  1. PULMICORT FLEXHALER [Suspect]
     Active Substance: BUDESONIDE
     Dosage: 180UG/INHAL TWO TIMES A DAY
     Route: 055
     Dates: start: 20200330

REACTIONS (4)
  - Device failure [Unknown]
  - Dyspnoea [Unknown]
  - Incorrect dose administered [Unknown]
  - Device use issue [Unknown]

NARRATIVE: CASE EVENT DATE: 20200330
